FAERS Safety Report 4719612-0 (Version None)
Quarter: 2005Q3

REPORT INFORMATION
  Report Type: 
  Country: None (occurrence: None)
  Receive Date: 20050721
  Receipt Date: 20040413
  Transmission Date: 20060218
  Serious: Yes (Hospitalization)
  Sender: FDA-Public Use
  Company Number: US-GLAXOSMITHKLINE-A0508223A

PATIENT
  Age: 67 Year
  Sex: Female
  Weight: 115.9 kg

DRUGS (11)
  1. AVANDIA [Suspect]
     Dosage: 8MG PER DAY
     Route: 048
  2. NITROGLYCERIN [Concomitant]
  3. INSULIN [Concomitant]
  4. VASOTEC RPD [Concomitant]
  5. SYNTHROID [Concomitant]
  6. ACIPHEX [Concomitant]
  7. ESTROGEN [Concomitant]
  8. CELEBREX [Concomitant]
  9. PAXIL [Concomitant]
  10. ZOCOR [Concomitant]
  11. K-DUR 10 [Concomitant]

REACTIONS (1)
  - CARDIAC FAILURE CONGESTIVE [None]
